FAERS Safety Report 8999196 (Version 1)
Quarter: 2013Q1

REPORT INFORMATION
  Report Type: Spontaneous
  Country: JP (occurrence: JP)
  Receive Date: 20130103
  Receipt Date: 20130103
  Transmission Date: 20140127
  Serious: Yes (Hospitalization)
  Sender: FDA-Public Use
  Company Number: JP-JNJFOC-20130100068

PATIENT
  Sex: 0

DRUGS (2)
  1. DUROTEP MT [Suspect]
     Indication: PAIN
     Route: 062
  2. DUROTEP MT [Suspect]
     Indication: PAIN
     Route: 062

REACTIONS (2)
  - Hospitalisation [Unknown]
  - Inadequate analgesia [Unknown]
